FAERS Safety Report 11583976 (Version 1)
Quarter: 2015Q4

REPORT INFORMATION
  Report Type: Spontaneous
  Country: US (occurrence: US)
  Receive Date: 20151001
  Receipt Date: 20151001
  Transmission Date: 20160304
  Serious: No
  Sender: FDA-Public Use
  Company Number: US-ROCHE-669750

PATIENT
  Age: 39 Year
  Sex: Male

DRUGS (2)
  1. PEGASYS [Suspect]
     Active Substance: PEGINTERFERON ALFA-2A
     Indication: HEPATITIS C
     Route: 058
     Dates: start: 200809, end: 20090223
  2. COPEGUS [Suspect]
     Active Substance: RIBAVIRIN
     Indication: HEPATITIS C
     Dosage: DOSE: 200 MG-2 TABS  IN THE MORNING, 3 AT NIGHT
     Route: 048
     Dates: start: 200809, end: 20090223

REACTIONS (3)
  - Headache [Unknown]
  - Back pain [Unknown]
  - Muscle disorder [Unknown]

NARRATIVE: CASE EVENT DATE: 200809
